FAERS Safety Report 16123881 (Version 1)
Quarter: 2019Q1

REPORT INFORMATION
  Report Type: Spontaneous
  Country: FR (occurrence: FR)
  Receive Date: 20190327
  Receipt Date: 20190327
  Transmission Date: 20190418
  Serious: Yes (Hospitalization)
  Sender: FDA-Public Use
  Company Number: FR-ANIPHARMA-2019-FR-000052

PATIENT
  Age: 61 Year
  Sex: Female
  Weight: 74 kg

DRUGS (16)
  1. ERCEFURYL [Concomitant]
     Active Substance: NIFUROXAZIDE
     Dosage: UNK
     Route: 065
  2. ARIMIDEX [Suspect]
     Active Substance: ANASTROZOLE
     Indication: BREAST CANCER
     Dosage: 1 DF DAILY
     Route: 048
     Dates: start: 20050721
  3. LEVOTHYROX [Concomitant]
     Active Substance: LEVOTHYROXINE
     Dosage: DRUG ADMINISTERED SINCE JUL-2005
     Route: 048
     Dates: start: 200507
  4. NEXEN [Suspect]
     Active Substance: NIMESULIDE
     Dosage: UNK
     Route: 048
     Dates: start: 20051101, end: 200511
  5. ARESTAL [Concomitant]
     Active Substance: LOPERAMIDE OXIDE
     Dosage: UNK
     Route: 065
  6. SPASFON [Concomitant]
     Dosage: UNK
     Route: 065
  7. BREXINE [Concomitant]
     Active Substance: PIROXICAM BETADEX
     Dosage: 20 MG DAILY
     Route: 048
     Dates: start: 20051101, end: 200511
  8. LOPERAMIDE [Concomitant]
     Active Substance: LOPERAMIDE
     Dosage: UNK
     Route: 065
  9. ABUFENE [Concomitant]
     Dosage: UNK
     Route: 065
  10. KETOPROFEN. [Suspect]
     Active Substance: KETOPROFEN
     Dosage: 150 MG DAILY
     Route: 048
     Dates: start: 20051101, end: 200511
  11. DICETEL [Concomitant]
     Active Substance: PINAVERIUM BROMIDE
     Dosage: UNK
     Route: 065
  12. TAMOXIFEN [Concomitant]
     Active Substance: TAMOXIFEN
     Dosage: DRUG ADMINISTERED UNTIL 21-JUL-2005
     Route: 048
     Dates: start: 20050721
  13. FENOFIBRATE. [Concomitant]
     Active Substance: FENOFIBRATE
     Dosage: UNK
     Route: 065
  14. DAFALGAN [Concomitant]
     Active Substance: ACETAMINOPHEN
     Dosage: UNK
     Route: 048
     Dates: start: 200511
  15. TIORFAN [Concomitant]
     Active Substance: RACECADOTRIL
     Dosage: UNK
     Route: 065
  16. EUPANTOL [Suspect]
     Active Substance: PANTOPRAZOLE SODIUM
     Dosage: 1 DF DAILY
     Route: 048
     Dates: start: 20050701

REACTIONS (1)
  - Colitis [Recovering/Resolving]

NARRATIVE: CASE EVENT DATE: 20050721
